FAERS Safety Report 4283407-5 (Version None)
Quarter: 2004Q1

REPORT INFORMATION
  Report Type: 
  Country: None (occurrence: None)
  Receive Date: 20040129
  Receipt Date: 20040119
  Transmission Date: 20041129
  Serious: Yes (Hospitalization)
  Sender: FDA-Public Use
  Company Number: 2004GB00142

PATIENT
  Age: 83 Year
  Sex: Female

DRUGS (3)
  1. ATENOLOL [Suspect]
  2. METALYSE [Suspect]
  3. HEPARIN [Suspect]

REACTIONS (1)
  - CEREBROVASCULAR ACCIDENT [None]
